FAERS Safety Report 8538069-5 (Version None)
Quarter: 2012Q3

REPORT INFORMATION
  Report Type: 
  Country: None (occurrence: None)
  Receive Date: 20120725
  Receipt Date: 20120719
  Transmission Date: 20120928
  Serious: Yes (Hospitalization)
  Sender: FDA-Public Use
  Company Number: BE-PFIZER INC-2012176135

PATIENT
  Sex: Female
  Weight: 99.5 kg

DRUGS (15)
  1. FLECAINIDE ACETATE [Concomitant]
     Indication: ARRHYTHMIA
     Dosage: UNK
     Dates: start: 20040715
  2. LEVOTHYROXINE [Concomitant]
     Indication: BLOOD THYROID STIMULATING HORMONE DECREASED
     Dosage: UNK
     Dates: start: 19820701
  3. ESTROGEL [Concomitant]
     Indication: BLOOD LUTEINISING HORMONE DECREASED
     Dosage: UNK
     Dates: start: 19810701
  4. ESTROGEL [Concomitant]
     Indication: BLOOD FOLLICLE STIMULATING HORMONE DECREASED
  5. ESTROGEL [Concomitant]
     Indication: HYPOGONADISM FEMALE
  6. HYDROCORTISONE [Concomitant]
     Indication: BLOOD CORTICOTROPHIN DECREASED
     Dosage: UNK
     Dates: start: 19860701
  7. GENOTROPIN [Suspect]
     Dosage: 0.2 MG, FREQUENCY 7
     Route: 058
     Dates: start: 20020320
  8. DUPHASTON [Concomitant]
     Indication: BLOOD FOLLICLE STIMULATING HORMONE DECREASED
  9. LEVOTHYROXINE [Concomitant]
     Indication: PRIMARY HYPOTHYROIDISM
  10. TAMBOCOR [Concomitant]
     Indication: ATRIAL FIBRILLATION
     Dosage: UNK
     Dates: start: 20020115
  11. TAMBOCOR [Concomitant]
     Indication: ATRIAL FLUTTER
  12. PRASTERONE [Concomitant]
     Indication: BLOOD CORTICOTROPHIN DECREASED
     Dosage: UNK
     Dates: start: 20010606
  13. PARLODEL [Concomitant]
     Indication: GALACTOSAEMIA
     Dosage: UNK
     Dates: start: 19810701
  14. DUPHASTON [Concomitant]
     Indication: BLOOD LUTEINISING HORMONE DECREASED
     Dosage: UNK
     Dates: start: 19810701
  15. DUPHASTON [Concomitant]
     Indication: HYPOGONADISM FEMALE

REACTIONS (1)
  - INGUINAL HERNIA [None]
